FAERS Safety Report 24297945 (Version 1)
Quarter: 2024Q3

REPORT INFORMATION
  Report Type: Report from Study
  Country: US (occurrence: US)
  Receive Date: 20240909
  Receipt Date: 20240909
  Transmission Date: 20241017
  Serious: Yes (Hospitalization)
  Sender: ROCHE
  Company Number: US-ROCHE-10000012051

PATIENT
  Age: 75 Year
  Sex: Female

DRUGS (5)
  1. RITUXIMAB [Suspect]
     Active Substance: RITUXIMAB
     Indication: Product used for unknown indication
     Route: 065
  2. ACTEMRA [Suspect]
     Active Substance: TOCILIZUMAB
     Indication: Systemic scleroderma
     Dosage: INJECT 0.9ML SYRINGE UNDER THE SKIN ONCE EVERY WEDNESDAY
     Route: 058
  3. ACTEMRA [Suspect]
     Active Substance: TOCILIZUMAB
     Indication: Neoplasm malignant
  4. ACTEMRA [Suspect]
     Active Substance: TOCILIZUMAB
     Indication: Chronic graft versus host disease
  5. ACTEMRA [Suspect]
     Active Substance: TOCILIZUMAB
     Indication: Acute myeloid leukaemia

REACTIONS (2)
  - Drug hypersensitivity [Unknown]
  - Full blood count abnormal [Unknown]
